FAERS Safety Report 17960451 (Version 2)
Quarter: 2020Q3

REPORT INFORMATION
  Report Type: Spontaneous
  Country: US (occurrence: US)
  Receive Date: 20200630
  Receipt Date: 20200728
  Transmission Date: 20201103
  Serious: No
  Sender: FDA-Public Use
  Company Number: US-BAYER-2020-127434

PATIENT
  Age: 67 Year
  Sex: Female

DRUGS (5)
  1. MIRALAX [Suspect]
     Active Substance: POLYETHYLENE GLYCOL 3350
     Indication: GASTROINTESTINAL DISORDER
     Dosage: 1 CAP FULL, QD
     Route: 048
     Dates: start: 202006, end: 202007
  2. VITAMINS NOS [Concomitant]
     Active Substance: VITAMINS
  3. COUMADIN [Concomitant]
     Active Substance: WARFARIN SODIUM
  4. SYNTHROID [Concomitant]
     Active Substance: LEVOTHYROXINE SODIUM
  5. ASPIRIN (PAIN AND FEVER) [Concomitant]
     Active Substance: ASPIRIN

REACTIONS (9)
  - Asthenia [Unknown]
  - Diarrhoea [Unknown]
  - Eye swelling [Unknown]
  - Nausea [Unknown]
  - Weight increased [Unknown]
  - Peripheral swelling [Unknown]
  - Abdominal distension [Unknown]
  - Gastrointestinal pain [Unknown]
  - Fluid retention [Unknown]

NARRATIVE: CASE EVENT DATE: 2020
